FAERS Safety Report 25191615 (Version 1)
Quarter: 2025Q2

REPORT INFORMATION
  Report Type: Spontaneous
  Country: US (occurrence: None)
  Receive Date: 20250411
  Receipt Date: 20250411
  Transmission Date: 20250716
  Serious: No
  Sender: FDA-CTU
  Company Number: None

PATIENT
  Age: 57 Year
  Sex: Female
  Weight: 90 kg

DRUGS (1)
  1. XEMBIFY [Suspect]
     Active Substance: HUMAN IMMUNOGLOBULIN G
     Indication: Immunodeficiency common variable
     Route: 058
     Dates: start: 20250407, end: 20250407

REACTIONS (5)
  - Infusion related reaction [None]
  - Infusion site erythema [None]
  - Infusion site reaction [None]
  - Infusion site pruritus [None]
  - Infusion site warmth [None]

NARRATIVE: CASE EVENT DATE: 20250407
